FAERS Safety Report 11174621 (Version 1)
Quarter: 2015Q2

REPORT INFORMATION
  Report Type: Spontaneous
  Country: US (occurrence: US)
  Receive Date: 20150609
  Receipt Date: 20150609
  Transmission Date: 20150821
  Serious: Yes (Other)
  Sender: FDA-Public Use
  Company Number: US-BAYER-2015-307503

PATIENT
  Age: 45 Year
  Sex: Female
  Weight: 53 kg

DRUGS (1)
  1. MOXIFLOXACIN ORAL [Suspect]
     Active Substance: MOXIFLOXACIN
     Dosage: 400 MG, ONCE DAILY
     Route: 048

REACTIONS (9)
  - Muscle spasms [Recovered/Resolved]
  - Nervousness [None]
  - Palpitations [None]
  - Tremor [Recovered/Resolved]
  - Seizure [Recovered/Resolved]
  - Nausea [None]
  - Anxiety [None]
  - Dyskinesia [Recovered/Resolved]
  - Agitation [None]
